FAERS Safety Report 9861834 (Version 2)
Quarter: 2014Q1

REPORT INFORMATION
  Report Type: Spontaneous
  Country: US (occurrence: US)
  Receive Date: 20140203
  Receipt Date: 20140313
  Transmission Date: 20141002
  Serious: No
  Sender: FDA-Public Use
  Company Number: US-PFIZER INC-2014027054

PATIENT
  Age: 65 Year
  Sex: Female

DRUGS (9)
  1. NEURONTIN [Suspect]
     Dosage: 100 MG, 3X/DAY
     Route: 048
  2. ASCORBATE CALCIUM [Concomitant]
     Dosage: 500 MG, 1X/DAY
     Route: 048
  3. BENICAR [Concomitant]
     Dosage: 20 MG, 1X/DAY
     Route: 048
  4. COUMADIN ^BOOTS^ [Concomitant]
     Dosage: 2.5 MG, UNK
  5. DOXYCYCLINE HYCLATE [Concomitant]
     Dosage: 100 MG, 2X/DAY
  6. LYRICA [Concomitant]
     Dosage: 100 MG, 2X/DAY
  7. MUPIROCIN [Concomitant]
     Dosage: 2 %, UNK
     Route: 061
  8. OXYCODONE [Concomitant]
     Dosage: 5 MG, AS NEEDED
  9. SYNTHROID [Concomitant]
     Dosage: 150 MG, 1X/DAY
     Route: 048

REACTIONS (6)
  - Fatigue [Unknown]
  - Pain in extremity [Unknown]
  - Weight increased [Unknown]
  - Asthenia [Unknown]
  - Burning sensation [Unknown]
  - Frustration [Unknown]
